FAERS Safety Report 17796935 (Version 7)
Quarter: 2020Q4

REPORT INFORMATION
  Report Type: Spontaneous
  Country: US (occurrence: US)
  Receive Date: 20200518
  Receipt Date: 20201016
  Transmission Date: 20210113
  Serious: Yes (Hospitalization)
  Sender: FDA-Public Use
  Company Number: US-GLAXOSMITHKLINE-US2020AMR081337

PATIENT
  Sex: Female

DRUGS (5)
  1. ZEJULA [Suspect]
     Active Substance: NIRAPARIB
     Dosage: 200 MG, QD
  2. LEXAPRO [Suspect]
     Active Substance: ESCITALOPRAM OXALATE
     Indication: PRODUCT USED FOR UNKNOWN INDICATION
     Dosage: UNK
  3. ZEJULA [Suspect]
     Active Substance: NIRAPARIB
     Indication: OVARIAN CANCER
     Dosage: 200 MG, DAILY
     Dates: start: 201911
  4. ZEJULA [Suspect]
     Active Substance: NIRAPARIB
     Dosage: 100 MG, QD
     Dates: start: 2020
  5. ZEJULA [Suspect]
     Active Substance: NIRAPARIB
     Dosage: 200 MG, QD
     Dates: start: 20200724

REACTIONS (11)
  - Splenectomy [Unknown]
  - Fatigue [Recovered/Resolved]
  - Hypotension [Recovered/Resolved]
  - Headache [Unknown]
  - Anxiety [Unknown]
  - Nausea [Unknown]
  - Dizziness [Recovered/Resolved]
  - Vertigo [Unknown]
  - Positron emission tomogram abnormal [Unknown]
  - Off label use [Unknown]
  - Aneurysm [Unknown]
